FAERS Safety Report 19165425 (Version 1)
Quarter: 2021Q2

REPORT INFORMATION
  Report Type: Spontaneous
  Country: US (occurrence: US)
  Receive Date: 20210420
  Receipt Date: 20210420
  Transmission Date: 20210717
  Serious: Yes (Other)
  Sender: FDA-Public Use
  Company Number: None

PATIENT
  Age: 31 Year
  Sex: Female
  Weight: 127 kg

DRUGS (1)
  1. CASIRIVIMAB (1.2 G) AND IMDEVIMAB (1.2 G) [Suspect]
     Active Substance: CASIRIVIMAB\IMDEVIMAB
     Indication: COVID-19
     Route: 042

REACTIONS (2)
  - Pruritus [None]
  - Vomiting [None]

NARRATIVE: CASE EVENT DATE: 20210420
